FAERS Safety Report 20702839 (Version 1)
Quarter: 2022Q2

REPORT INFORMATION
  Report Type: Spontaneous
  Country: DE (occurrence: DE)
  Receive Date: 20220412
  Receipt Date: 20220412
  Transmission Date: 20220721
  Serious: Yes (Other)
  Sender: FDA-Public Use
  Company Number: DE-KRKA-DE2022K03586SPO

PATIENT
  Age: 8 Year
  Sex: Female

DRUGS (1)
  1. CONCERTA [Suspect]
     Active Substance: METHYLPHENIDATE HYDROCHLORIDE
     Indication: Attention deficit hyperactivity disorder
     Dosage: 5 MG, 2X PER DAY (1/2-1/2-0-0)
     Route: 048
     Dates: start: 20220309, end: 20220309

REACTIONS (8)
  - Amnesia [Recovered/Resolved]
  - Mental status changes [Not Recovered/Not Resolved]
  - Frustration tolerance decreased [Recovering/Resolving]
  - Substance-induced psychotic disorder [Recovered/Resolved]
  - Delusion [Recovered/Resolved]
  - Aggression [Not Recovered/Not Resolved]
  - Wrong technique in product usage process [Unknown]
  - Off label use [Unknown]

NARRATIVE: CASE EVENT DATE: 20220309
